FAERS Safety Report 8852418 (Version 1)
Quarter: 2012Q4

REPORT INFORMATION
  Report Type: 
  Country: NL (occurrence: NL)
  Receive Date: 20121022
  Receipt Date: 20121022
  Transmission Date: 20130627
  Serious: Yes (Other)
  Sender: FDA-Public Use
  Company Number: NL-ROCHE-1147263

PATIENT
  Age: 48 Year
  Sex: Female

DRUGS (6)
  1. VALGANCICLOVIR [Suspect]
     Indication: NASOPHARYNGEAL CANCER
     Route: 048
  2. VALGANCICLOVIR [Suspect]
     Dosage: 25 percent reduction in dose during the 5th cycle
     Route: 048
  3. VALPROIC ACID [Suspect]
     Indication: NASOPHARYNGEAL CANCER
     Route: 048
  4. VALPROIC ACID [Suspect]
     Dosage: 25 percent reduction in dose during the 5th cycle
     Route: 048
  5. GEMCITABINE [Suspect]
     Indication: NASOPHARYNGEAL CANCER
     Route: 042
  6. GEMCITABINE [Suspect]
     Dosage: 25 percent reduction in dose during the 5th cycle
     Route: 042

REACTIONS (4)
  - Decreased appetite [Unknown]
  - Pneumonia aspiration [Unknown]
  - Infection [Unknown]
  - Alanine aminotransferase increased [Unknown]
